FAERS Safety Report 8693112 (Version 2)
Quarter: 2013Q1

REPORT INFORMATION
  Report Type: Report from Study
  Country: JP (occurrence: JP)
  Receive Date: 20120730
  Receipt Date: 20130102
  Transmission Date: 20140127
  Serious: Yes (Other)
  Sender: FDA-Public Use
  Company Number: JP-ROCHE-1003895

PATIENT
  Age: 23 Year
  Sex: Female

DRUGS (16)
  1. TOCILIZUMAB [Suspect]
     Indication: JUVENILE IDIOPATHIC ARTHRITIS
     Route: 041
     Dates: start: 20101113, end: 20110716
  2. TOCILIZUMAB [Suspect]
     Indication: JUVENILE IDIOPATHIC ARTHRITIS
     Route: 041
     Dates: start: 20110806, end: 20110903
  3. TOCILIZUMAB [Suspect]
     Indication: JUVENILE IDIOPATHIC ARTHRITIS
     Dosage: DOSAGE IS UNCERTAIN.
     Route: 041
  4. PREDNISOLONE [Suspect]
     Indication: JUVENILE IDIOPATHIC ARTHRITIS
     Route: 048
     Dates: start: 20101113, end: 20101126
  5. PREDNISOLONE [Suspect]
     Indication: JUVENILE IDIOPATHIC ARTHRITIS
     Route: 048
     Dates: start: 20101127, end: 20110107
  6. PREDNISOLONE [Suspect]
     Indication: JUVENILE IDIOPATHIC ARTHRITIS
     Route: 048
     Dates: start: 20110108, end: 20110206
  7. PREDNISOLONE [Suspect]
     Indication: JUVENILE IDIOPATHIC ARTHRITIS
     Route: 048
     Dates: start: 20110207, end: 20110401
  8. PREDNISOLONE [Suspect]
     Indication: JUVENILE IDIOPATHIC ARTHRITIS
     Route: 048
     Dates: start: 20110402
  9. LOXONIN [Concomitant]
     Indication: JUVENILE IDIOPATHIC ARTHRITIS
     Route: 048
     Dates: end: 20101126
  10. CYTOTEC [Concomitant]
     Route: 048
     Dates: end: 20101126
  11. ONEALFA [Concomitant]
     Route: 048
  12. METHOTREXATE [Concomitant]
     Indication: JUVENILE IDIOPATHIC ARTHRITIS
     Route: 048
     Dates: start: 20101113, end: 20110603
  13. BAKTAR [Concomitant]
     Indication: PROPHYLAXIS
     Route: 048
     Dates: end: 20110218
  14. MUCOSTA [Concomitant]
     Route: 048
     Dates: start: 20101127
  15. EBASTEL [Concomitant]
     Indication: PROPHYLAXIS
     Dosage: THIS MEDICINE PREINITIATION ADMINISTERING
     Route: 048
     Dates: start: 20101211, end: 20110903
  16. LOXOPROFEN SODIUM [Concomitant]

REACTIONS (4)
  - Premature labour [Unknown]
  - Lymphadenitis [Recovered/Resolved]
  - Exposure during pregnancy [Unknown]
  - Bronchitis [Recovered/Resolved]
